FAERS Safety Report 22907322 (Version 4)
Quarter: 2024Q3

REPORT INFORMATION
  Report Type: Spontaneous
  Country: DE (occurrence: DE)
  Receive Date: 20230905
  Receipt Date: 20240820
  Transmission Date: 20241016
  Serious: Yes (Other)
  Sender: BAUSCH AND LOMB
  Company Number: DE-JNJFOC-20230859947

PATIENT
  Age: 8 Decade
  Sex: Male
  Weight: 90 kg

DRUGS (47)
  1. DEXAMETHASONE [Suspect]
     Active Substance: DEXAMETHASONE
     Indication: Plasma cell myeloma
     Dosage: BRIDGING THERAPY, SECOND CYCLE AS A PART OF SHORTENED PROTOCOL POM-PAD-DARA
     Route: 065
     Dates: start: 20230612
  2. DEXAMETHASONE [Suspect]
     Active Substance: DEXAMETHASONE
     Dosage: BRIDGING THERAPY, THIRD CYCLE, AS A PART OF SHORTENED PROTOCOL POM-PAD-DARA
     Route: 065
     Dates: start: 20230704
  3. DEXAMETHASONE [Suspect]
     Active Substance: DEXAMETHASONE
     Dosage: 20 MG, D0, BRIDGING THERAPY
     Route: 065
     Dates: start: 20230516
  4. DEXAMETHASONE [Suspect]
     Active Substance: DEXAMETHASONE
     Dosage: 20 MG, D4, BRIDGING THERAPY
     Route: 065
     Dates: start: 20230520
  5. DEXAMETHASONE [Suspect]
     Active Substance: DEXAMETHASONE
     Dosage: 20 MG, D1, BRIDGING THERAPY
     Route: 065
     Dates: start: 20230517
  6. DEXAMETHASONE [Suspect]
     Active Substance: DEXAMETHASONE
     Dosage: BRIDGING THERAPY, THIRD CYCLE, AS A PART OF SHORTENED PROTOCOL POM-PAD-DARA
     Route: 065
     Dates: start: 20230706
  7. DEXAMETHASONE [Suspect]
     Active Substance: DEXAMETHASONE
     Dosage: 20 MG, D5, BRIDGING THERAPY
     Route: 065
     Dates: start: 20230521
  8. DEXAMETHASONE [Suspect]
     Active Substance: DEXAMETHASONE
     Dosage: 20 MG, D1, BRIDGING THERAPY, THIRD CYCLE, AS A PART OF SHORTENED PROTOCOL POM-PAD-DARA
     Route: 065
     Dates: start: 20230705
  9. DEXAMETHASONE [Suspect]
     Active Substance: DEXAMETHASONE
     Dosage: 20 MG, D1, BRIDGING THERAPY, SECOND CYCLE, AS A PART OF SHORTENED PROTOCOL POM-PAD-DARA
     Route: 065
     Dates: start: 20230613
  10. DEXAMETHASONE [Suspect]
     Active Substance: DEXAMETHASONE
     Dosage: 20 MG, D2, BRIDGING THERAPY
     Route: 065
     Dates: start: 20230518
  11. DEXAMETHASONE [Suspect]
     Active Substance: DEXAMETHASONE
     Dosage: 20 MG, D2, BRIDGING THERAPY, SECOND CYCLE, AS A PART OF SHORTENED PROTOCOL POM-PAD-DARA
     Route: 065
     Dates: start: 20230614
  12. DEXAMETHASONE [Suspect]
     Active Substance: DEXAMETHASONE
     Route: 065
  13. DEXAMETHASONE [Suspect]
     Active Substance: DEXAMETHASONE
     Dosage: 20 MG, D2, BRIDGING THERAPY, SECOND CYCLE, AS A PART OF SHORTENED PROTOCOL POM-PAD-DARA
     Route: 065
     Dates: start: 20230514
  14. DOXORUBICIN [Suspect]
     Active Substance: DOXORUBICIN
     Indication: Plasma cell myeloma
     Dosage: 9 MG/M2, D1, BRIDGING THERAPY, SECOND CYCLE, AS A PART OF SHORTENED PROTOCOL POM-PAD-DARA
     Route: 065
     Dates: start: 20230612
  15. DOXORUBICIN [Suspect]
     Active Substance: DOXORUBICIN
     Dosage: 9 MG/M2, D1, BRIDGING THERAPY, THIRD CYCLE, AS A PART OF SHORTENED PROTOCOL POM-PAD-DARA
     Route: 065
     Dates: start: 20230704
  16. DOXORUBICIN [Suspect]
     Active Substance: DOXORUBICIN
     Dosage: 9 MG/M2, D1-4, BRIDGING THERAPY
     Route: 065
     Dates: start: 20230516, end: 20230520
  17. DOXORUBICIN [Suspect]
     Active Substance: DOXORUBICIN
     Route: 065
     Dates: start: 20230804
  18. DOXORUBICIN [Suspect]
     Active Substance: DOXORUBICIN
     Dosage: BRIDGING THERAPY, C1
     Route: 065
     Dates: start: 20230517, end: 20230520
  19. DOXORUBICIN [Suspect]
     Active Substance: DOXORUBICIN
     Dosage: BRIDGING THERAPY, THIRD CYCLE
     Route: 065
     Dates: start: 20230706
  20. DOXORUBICIN [Suspect]
     Active Substance: DOXORUBICIN
     Dosage: BRIDGING THERAPY, THIRD CYCLE
     Route: 065
     Dates: start: 20230705
  21. DOXORUBICIN [Suspect]
     Active Substance: DOXORUBICIN
     Dosage: BRIDGING THERAPY, THIRD CYCLE
     Route: 065
     Dates: start: 20230707
  22. DOXORUBICIN [Suspect]
     Active Substance: DOXORUBICIN
     Dosage: BRIDGING THERAPY, SECOND CYCLE
     Route: 065
     Dates: start: 20230613
  23. DOXORUBICIN [Suspect]
     Active Substance: DOXORUBICIN
     Dosage: BRIDGING THERAPY, FOURTH CYCLE
     Route: 065
     Dates: start: 20230805, end: 20230808
  24. DOXORUBICIN [Suspect]
     Active Substance: DOXORUBICIN
     Dosage: BRIDGING THERAPY, SECOND CYCLE
     Route: 065
     Dates: start: 20230615
  25. DOXORUBICIN [Suspect]
     Active Substance: DOXORUBICIN
     Dosage: 9 MG/M2, D2, BRIDGING THERAPY, SECOND CYCLE, AS A PART OF SHORTENED PROTOCOL POM-PAD-DARA
     Route: 065
     Dates: start: 20230614
  26. DOXORUBICIN [Suspect]
     Active Substance: DOXORUBICIN
     Dosage: 9 MG/M2, D1, BRIDGING THERAPY, SECOND CYCLE, AS A PART OF SHORTENED PROTOCOL POM-PAD-DARA
     Route: 065
  27. BORTEZOMIB [Suspect]
     Active Substance: BORTEZOMIB
     Indication: Plasma cell myeloma
     Dosage: 1.3 MG/M2, D1, BRIDGING THERAPY
     Route: 065
     Dates: start: 20230516
  28. BORTEZOMIB [Suspect]
     Active Substance: BORTEZOMIB
     Dosage: 1.3 MG/M2, D1, BRIDGING THERAPY, SECOND CYCLE, AS A PART OF SHORTENED PROTOCOL POM-PAD-DARA
     Route: 065
     Dates: start: 20230612
  29. BORTEZOMIB [Suspect]
     Active Substance: BORTEZOMIB
     Dosage: 1.3 MG/M2, D1, BRIDGING THERAPY, THIRD CYCLE, AS A PART OF SHORTENED PROTOCOL POM-PAD-DARA
     Route: 065
     Dates: start: 20230704
  30. BORTEZOMIB [Suspect]
     Active Substance: BORTEZOMIB
     Dosage: 1.3 MG/M2, D4, BRIDGING THERAPY
     Route: 065
     Dates: start: 20230520
  31. BORTEZOMIB [Suspect]
     Active Substance: BORTEZOMIB
     Dosage: BRIDGING THERAPY, SECOND CYCLE
     Route: 065
     Dates: start: 20230613
  32. BORTEZOMIB [Suspect]
     Active Substance: BORTEZOMIB
     Dosage: AS PART OF BRIDGING THERAPY
     Route: 065
     Dates: start: 20230517
  33. BORTEZOMIB [Suspect]
     Active Substance: BORTEZOMIB
     Dosage: 1.3 MG/M2, D1, BRIDGING THERAPY, SECOND CYCLE, AS A PART OF SHORTENED PROTOCOL POM-PAD-DARA
     Route: 065
     Dates: start: 20230612
  34. BORTEZOMIB [Suspect]
     Active Substance: BORTEZOMIB
     Route: 065
  35. DARZALEX [Suspect]
     Active Substance: DARATUMUMAB
     Indication: Plasma cell myeloma
     Dosage: 16 MG/M2, D0, BRIDGING THERAPY
     Route: 065
     Dates: start: 20230516
  36. DARZALEX [Suspect]
     Active Substance: DARATUMUMAB
     Dosage: 16 MG/M2, D0, BRIDGING THERAPY, THIRD CYCLE, AS A PART OF SHORTENED PROTOCOL POM-PAD-DARA
     Route: 065
     Dates: start: 20230704
  37. DARZALEX [Suspect]
     Active Substance: DARATUMUMAB
     Dosage: 16 MG/M2, D0, BRIDGING THERAPY, SECOND CYCLE, AS A PART OF SHORTENED PROTOCOL POM-PAD-DARA
     Route: 065
     Dates: start: 20230612
  38. DARZALEX [Suspect]
     Active Substance: DARATUMUMAB
     Dosage: 16 MG/M2, D3, BRIDGING THERAPY, THIRD CYCLE, AS A PART OF SHORTENED PROTOCOL POM-PAD-DARA
     Route: 065
     Dates: start: 20230707
  39. DARZALEX [Suspect]
     Active Substance: DARATUMUMAB
     Dosage: 16 MG/M2, D3, BRIDGING THERAPY, SECOND CYCLE, AS A PART OF SHORTENED PROTOCOL POM-PAD-DARA
     Route: 065
     Dates: start: 20230615
  40. DARZALEX [Suspect]
     Active Substance: DARATUMUMAB
     Dosage: 16 MG/M2, D5, BRIDGING THERAPY
     Route: 065
     Dates: start: 20230521
  41. DARZALEX [Suspect]
     Active Substance: DARATUMUMAB
     Route: 065
  42. POMALIDOMIDE [Suspect]
     Active Substance: POMALIDOMIDE
     Indication: Plasma cell myeloma
     Dosage: 4 MG, D1-3, BRIDGING THERAPY, SECOND CYCLE, AS A PART OF SHORTENED PROTOCOL POM-PAD-DARA
     Route: 065
     Dates: start: 20230512, end: 20230615
  43. POMALIDOMIDE [Suspect]
     Active Substance: POMALIDOMIDE
     Dosage: 4 MG, D1-14, BRIDGING THERAPY
     Route: 065
     Dates: start: 20230516, end: 20230530
  44. POMALIDOMIDE [Suspect]
     Active Substance: POMALIDOMIDE
     Dosage: 2 MG, D1-3, BRIDGING THERAPY, THIRD CYCLE, AS A PART OF SHORTENED PROTOCOL POM-PAD-DARA
     Route: 065
     Dates: start: 20230704, end: 20230707
  45. POMALIDOMIDE [Suspect]
     Active Substance: POMALIDOMIDE
     Route: 065
     Dates: start: 20230517, end: 20230530
  46. POMALIDOMIDE [Suspect]
     Active Substance: POMALIDOMIDE
     Dosage: BRIDGING THERAPY, THIRD CYCLE
     Route: 065
     Dates: start: 20230705, end: 20230707
  47. POMALIDOMIDE [Suspect]
     Active Substance: POMALIDOMIDE
     Dosage: BRIDGING THERAPY, SECOND CYCLE
     Route: 065
     Dates: start: 20230513, end: 20230615

REACTIONS (2)
  - Plasma cell myeloma [Unknown]
  - Intentional product use issue [Unknown]

NARRATIVE: CASE EVENT DATE: 20230101
